FAERS Safety Report 7558209-4 (Version None)
Quarter: 2011Q2

REPORT INFORMATION
  Report Type: 
  Country: None (occurrence: None)
  Receive Date: 20110620
  Receipt Date: 20110608
  Transmission Date: 20111010
  Serious: Yes (Hospitalization)
  Sender: FDA-Public Use
  Company Number: US-ELI_LILLY_AND_COMPANY-US201106002475

PATIENT
  Sex: Male

DRUGS (4)
  1. HUMALOG [Concomitant]
     Dosage: UNK
     Dates: start: 19990101
  2. HUMULIN R [Concomitant]
     Dosage: UNK
     Dates: start: 19990101
  3. HUMULIN R [Suspect]
     Indication: DIABETES MELLITUS
     Dosage: UNK
     Dates: start: 20090101
  4. LANTUS [Concomitant]
     Dosage: UNK
     Dates: start: 19990101

REACTIONS (2)
  - VASCULAR OCCLUSION [None]
  - BLOOD CHOLESTEROL INCREASED [None]
